FAERS Safety Report 11733653 (Version 2)
Quarter: 2015Q4

REPORT INFORMATION
  Report Type: Report from Study
  Country: US (occurrence: US)
  Receive Date: 20151113
  Receipt Date: 20151213
  Transmission Date: 20160304
  Serious: Yes (Other)
  Sender: FDA-Public Use
  Company Number: US-AMGEN-USASL2015117629

PATIENT
  Age: 34 Year
  Sex: Female

DRUGS (1)
  1. ENBREL [Suspect]
     Active Substance: ETANERCEPT
     Indication: RHEUMATOID ARTHRITIS
     Dosage: UNK
     Route: 065
     Dates: start: 20140701

REACTIONS (8)
  - Drug dose omission [Unknown]
  - Injection site swelling [Unknown]
  - Injection site rash [Unknown]
  - Pregnancy [Recovered/Resolved]
  - Pre-eclampsia [Recovered/Resolved]
  - Rheumatoid arthritis [Unknown]
  - Blood pressure abnormal [Not Recovered/Not Resolved]
  - Injection site pruritus [Unknown]

NARRATIVE: CASE EVENT DATE: 2014
